FAERS Safety Report 12373336 (Version 1)
Quarter: 2016Q2

REPORT INFORMATION
  Report Type: Other
  Country: DE (occurrence: DE)
  Receive Date: 20160516
  Receipt Date: 20160516
  Transmission Date: 20160815
  Serious: Yes (Other)
  Sender: FDA-Public Use
  Company Number: DE-LABORATOIRE HRA PHARMA-1052265

PATIENT
  Age: 0 Day
  Sex: Female
  Weight: .7 kg

DRUGS (1)
  1. ELLA [Suspect]
     Active Substance: ULIPRISTAL ACETATE
     Route: 048
     Dates: start: 20150609, end: 20150609

REACTIONS (2)
  - Premature baby [None]
  - Small for dates baby [None]

NARRATIVE: CASE EVENT DATE: 20151205
